FAERS Safety Report 6653466-0 (Version None)
Quarter: 2010Q1

REPORT INFORMATION
  Report Type: 
  Country: None (occurrence: None)
  Receive Date: 20100322
  Receipt Date: 20100322
  Transmission Date: 20100710
  Serious: No
  Sender: FDA-Public Use
  Company Number: None

PATIENT
  Age: 48 Year
  Sex: Male

DRUGS (1)
  1. VIRAMUNE [Suspect]
     Dates: start: 20081003, end: 20081112

REACTIONS (2)
  - HEPATITIS ACUTE [None]
  - HEPATITIS CHOLESTATIC [None]
